FAERS Safety Report 5551752-9 (Version None)
Quarter: 2007Q4

REPORT INFORMATION
  Report Type: 
  Country: None (occurrence: None)
  Receive Date: 20071212
  Receipt Date: 20071129
  Transmission Date: 20080405
  Serious: No
  Sender: FDA-Public Use
  Company Number: US-ELI_LILLY_AND_COMPANY-US200711006719

PATIENT
  Sex: Male
  Weight: 52.154 kg

DRUGS (6)
  1. STRATTERA [Suspect]
     Indication: ATTENTION DEFICIT/HYPERACTIVITY DISORDER
     Dosage: 40 MG, DAILY (1/D)
     Route: 048
     Dates: start: 20070701
  2. ABILIFY [Concomitant]
  3. ATIVAN [Concomitant]
  4. LAMICTAL [Concomitant]
  5. NALTREXONE HYDROCHLORIDE [Concomitant]
  6. BENADRYL [Concomitant]
     Indication: INSOMNIA

REACTIONS (3)
  - HEART RATE INCREASED [None]
  - HYPOTENSION [None]
  - PERONEAL MUSCULAR ATROPHY [None]
